FAERS Safety Report 4504434-6 (Version None)
Quarter: 2004Q4

REPORT INFORMATION
  Report Type: 
  Country: None (occurrence: None)
  Receive Date: 20041117
  Receipt Date: 20041117
  Transmission Date: 20050328
  Serious: Yes (Hospitalization)
  Sender: FDA-Public Use
  Company Number: None

PATIENT
  Sex: Male
  Weight: 84.2 kg

DRUGS (6)
  1. SEROQUEL [Suspect]
     Indication: DEMENTIA
     Dosage: 100 MG PO BID
     Route: 048
  2. SEROQUEL [Suspect]
     Indication: PSYCHOTIC DISORDER
     Dosage: 100 MG PO BID
     Route: 048
  3. RISPERDAL [Suspect]
     Indication: DEMENTIA
     Dosage: 2 MG PO QHS
     Route: 048
  4. RISPERDAL [Suspect]
     Indication: PSYCHOTIC DISORDER
     Dosage: 2 MG PO QHS
     Route: 048
  5. ZOLOFT [Concomitant]
  6. VALPROIC ACID [Concomitant]

REACTIONS (3)
  - ABNORMAL BEHAVIOUR [None]
  - COMMUNICATION DISORDER [None]
  - NEUROLEPTIC MALIGNANT SYNDROME [None]
